FAERS Safety Report 13358720 (Version 1)
Quarter: 2017Q1

REPORT INFORMATION
  Report Type: Spontaneous
  Country: US (occurrence: US)
  Receive Date: 20170322
  Receipt Date: 20170322
  Transmission Date: 20170429
  Serious: Yes (Other)
  Sender: FDA-Public Use
  Company Number: US-PFIZER INC-2017114097

PATIENT
  Age: 17 Year
  Sex: Male

DRUGS (1)
  1. ROBITUSSIN LINGERING COLD LONG-ACTING COUGH GELS [Suspect]
     Active Substance: DEXTROMETHORPHAN HYDROBROMIDE

REACTIONS (3)
  - Overdose [Unknown]
  - Drug abuse [Unknown]
  - Feeling abnormal [Unknown]
